FAERS Safety Report 5195881-0 (Version None)
Quarter: 2007Q1

REPORT INFORMATION
  Report Type: 
  Country: None (occurrence: None)
  Receive Date: 20070102
  Receipt Date: 20061220
  Transmission Date: 20070707
  Serious: Yes (Hospitalization)
  Sender: FDA-Public Use
  Company Number: FR-GLAXOSMITHKLINE-B0451450A

PATIENT
  Age: 37 Year
  Sex: Female
  Weight: 51 kg

DRUGS (7)
  1. TELZIR [Suspect]
     Dosage: 700MG TWICE PER DAY
     Route: 048
     Dates: start: 20050101, end: 20060908
  2. NORVIR [Suspect]
     Dosage: 900MG PER DAY
     Route: 048
     Dates: start: 20050101, end: 20060908
  3. RIMIFON [Suspect]
     Dosage: 200MG PER DAY
     Route: 048
     Dates: start: 20060828, end: 20060908
  4. LARGACTIL [Suspect]
     Route: 048
     Dates: start: 20060825, end: 20060905
  5. KALETRA [Suspect]
     Route: 048
     Dates: start: 20051201
  6. TERCIAN [Suspect]
     Dosage: 25MG PER DAY
     Route: 048
     Dates: start: 20060829, end: 20060905
  7. ANTI-TUBERCULOSIS MEDICATION [Concomitant]
     Indication: TUBERCULOSIS
     Route: 065
     Dates: start: 20060828

REACTIONS (8)
  - AGITATION [None]
  - BLOOD CREATINE PHOSPHOKINASE INCREASED [None]
  - COGNITIVE DISORDER [None]
  - CONFUSIONAL STATE [None]
  - NEUROLEPTIC MALIGNANT SYNDROME [None]
  - PYREXIA [None]
  - RHABDOMYOLYSIS [None]
  - TRANSAMINASES INCREASED [None]
